FAERS Safety Report 19068814 (Version 3)
Quarter: 2024Q3

REPORT INFORMATION
  Report Type: Report from Study
  Country: US (occurrence: US)
  Receive Date: 20210329
  Receipt Date: 20240708
  Transmission Date: 20241016
  Serious: No
  Sender: KYOWA
  Company Number: US-KYOWAKIRIN-2021BKK004721

PATIENT

DRUGS (2)
  1. CRYSVITA [Suspect]
     Active Substance: BUROSUMAB-TWZA
     Indication: Hereditary hypophosphataemic rickets
     Dosage: 40 MG, 1X/2 WEEKS
     Route: 058
     Dates: start: 2019
  2. CRYSVITA [Suspect]
     Active Substance: BUROSUMAB-TWZA
     Indication: Hereditary hypophosphataemic rickets
     Dosage: 3 ML, 1X/2 WEEKS (UNDER THE SKIN)
     Route: 058

REACTIONS (2)
  - Migraine [Unknown]
  - Injection site pain [Unknown]
